FAERS Safety Report 12495329 (Version 1)
Quarter: 2016Q2

REPORT INFORMATION
  Report Type: Spontaneous
  Country: US (occurrence: US)
  Receive Date: 20160624
  Receipt Date: 20160624
  Transmission Date: 20160815
  Serious: No
  Sender: FDA-Public Use
  Company Number: US-BAYER-2016-124078

PATIENT
  Age: 86 Year
  Sex: Female
  Weight: 81.63 kg

DRUGS (1)
  1. LOTRIMIN ULTRA ANTIFUNGAL [Suspect]
     Active Substance: BUTENAFINE HYDROCHLORIDE
     Indication: TINEA PEDIS
     Dosage: 1 DF, BID (USED PRODUCT FOR A WEEK)
     Route: 061
     Dates: start: 201605

REACTIONS (1)
  - Drug ineffective [None]
